FAERS Safety Report 6446461-8 (Version None)
Quarter: 2009Q4

REPORT INFORMATION
  Report Type: 
  Country: None (occurrence: None)
  Receive Date: 20091119
  Receipt Date: 20091112
  Transmission Date: 20100525
  Serious: Yes (Hospitalization)
  Sender: FDA-Public Use
  Company Number: PHHY2009JP38779

PATIENT
  Sex: Male
  Weight: 80 kg

DRUGS (7)
  1. ICL670A ICL+DISTAB [Suspect]
     Indication: APLASTIC ANAEMIA
     Dosage: 250 MG/DAY
     Route: 048
     Dates: start: 20080903, end: 20080917
  2. ICL670A ICL+DISTAB [Suspect]
     Indication: IRON OVERLOAD
     Dosage: 250 MG/DAY
     Route: 048
     Dates: start: 20081001, end: 20090217
  3. ICL670A ICL+DISTAB [Suspect]
     Dosage: 1000 MG/DAY
     Route: 048
     Dates: start: 20090218, end: 20090414
  4. ICL670A ICL+DISTAB [Suspect]
     Dosage: 1500 MG/DAY
     Route: 048
     Dates: start: 20090415
  5. NEORAL [Suspect]
     Indication: APLASTIC ANAEMIA
     Dosage: 300 MG/DAY
     Route: 048
     Dates: start: 20071205, end: 20081001
  6. PRIMOBOLAN [Concomitant]
     Dosage: 15 MG, UNK
     Route: 048
     Dates: start: 20071121
  7. PLATELETS [Concomitant]
     Dosage: 20 UNITS

REACTIONS (3)
  - INCISIONAL DRAINAGE [None]
  - PAIN [None]
  - PYODERMA [None]
